FAERS Safety Report 6755628-0 (Version None)
Quarter: 2010Q2

REPORT INFORMATION
  Report Type: 
  Country: None (occurrence: None)
  Receive Date: 20100604
  Receipt Date: 20100525
  Transmission Date: 20101027
  Serious: Yes (Hospitalization, Disabling, Other)
  Sender: FDA-Public Use
  Company Number: US-BAYER-200926423NA

PATIENT
  Age: 51 Year
  Sex: Female

DRUGS (4)
  1. YASMIN [Suspect]
     Indication: MENSTRUAL CYCLE MANAGEMENT
     Route: 048
     Dates: start: 20060302, end: 20060708
  2. PROPRANOLOL [Concomitant]
  3. PROTONIX [Concomitant]
  4. ALPRAZOLAM [Concomitant]

REACTIONS (11)
  - AGRAPHIA [None]
  - ANXIETY [None]
  - APHASIA [None]
  - CEREBROVASCULAR ACCIDENT [None]
  - CONFUSIONAL STATE [None]
  - DEPRESSION [None]
  - HEADACHE [None]
  - HEARING IMPAIRED [None]
  - MUSCULAR WEAKNESS [None]
  - READING DISORDER [None]
  - SPEECH DISORDER [None]
